FAERS Safety Report 4879112-4 (Version None)
Quarter: 2006Q1

REPORT INFORMATION
  Report Type: 
  Country: None (occurrence: None)
  Receive Date: 20060112
  Receipt Date: 20060105
  Transmission Date: 20060701
  Serious: Yes (Hospitalization)
  Sender: FDA-Public Use
  Company Number: CO-JNJFOC-20051206056

PATIENT
  Age: 76 Year
  Sex: Female

DRUGS (2)
  1. REMINYL [Suspect]
  2. REMINYL [Suspect]

REACTIONS (7)
  - ASTHENIA [None]
  - BRADYCARDIA [None]
  - HYPERHIDROSIS [None]
  - HYPERTENSION [None]
  - HYPOTENSION [None]
  - SOMNOLENCE [None]
  - VOMITING [None]
